FAERS Safety Report 24369424 (Version 1)
Quarter: 2024Q3

REPORT INFORMATION
  Report Type: Report from Study
  Country: US (occurrence: US)
  Receive Date: 20240927
  Receipt Date: 20240927
  Transmission Date: 20241017
  Serious: No
  Sender: ROCHE
  Company Number: US-ROCHE-2881814

PATIENT
  Age: 48 Year
  Sex: Male

DRUGS (4)
  1. LUCENTIS [Suspect]
     Active Substance: RANIBIZUMAB
     Indication: Macular degeneration
     Dosage: DATE OF TREATMENT : 07/SEP/2021,02/JUL/2021, 03/JUL/2021,28/MAR/2022, 22/APR/2022,30/SEP/2021, 20/OC
     Route: 065
  2. LUCENTIS [Suspect]
     Active Substance: RANIBIZUMAB
     Indication: Retinal dystrophy
  3. VABYSMO [Suspect]
     Active Substance: FARICIMAB-SVOA
     Indication: Macular degeneration
     Dosage: 6 MG LEFT EYE EVERY 3 TO 5 WEEKS
     Route: 047
  4. VABYSMO [Suspect]
     Active Substance: FARICIMAB-SVOA
     Indication: Retinal dystrophy

REACTIONS (3)
  - Off label use [Unknown]
  - No adverse event [Unknown]
  - Off label use [Unknown]
